FAERS Safety Report 5237259-7 (Version None)
Quarter: 2007Q1

REPORT INFORMATION
  Report Type: 
  Country: None (occurrence: None)
  Receive Date: 20070213
  Receipt Date: 20070205
  Transmission Date: 20070707
  Serious: Yes (Other)
  Sender: FDA-Public Use
  Company Number: GB-ROCHE-482033

PATIENT
  Age: 77 Year
  Sex: Female
  Weight: 115 kg

DRUGS (1)
  1. XENICAL [Suspect]
     Indication: OBESITY
     Route: 048
     Dates: start: 20070105

REACTIONS (3)
  - ABDOMINAL DISTENSION [None]
  - HOT FLUSH [None]
  - HYPOGLYCAEMIA [None]
